FAERS Safety Report 6446200-0 (Version None)
Quarter: 2009Q4

REPORT INFORMATION
  Report Type: 
  Country: None (occurrence: None)
  Receive Date: 20091119
  Receipt Date: 20091106
  Transmission Date: 20100525
  Serious: Yes (Hospitalization)
  Sender: FDA-Public Use
  Company Number: CH-JNJFOC-20090907603

PATIENT
  Age: 69 Year
  Sex: Female

DRUGS (12)
  1. RISPERIDONE [Suspect]
     Route: 048
     Dates: start: 20090610, end: 20090706
  2. RISPERIDONE [Suspect]
     Route: 048
     Dates: start: 20090610, end: 20090706
  3. RISPERIDONE [Suspect]
     Route: 048
     Dates: start: 20090610, end: 20090706
  4. RISPERIDONE [Suspect]
     Route: 048
     Dates: start: 20090610, end: 20090706
  5. RISPERIDONE [Suspect]
     Indication: DRUG USE FOR UNKNOWN INDICATION
     Route: 048
     Dates: start: 20090610, end: 20090706
  6. DIPIPERON [Suspect]
     Indication: DRUG USE FOR UNKNOWN INDICATION
     Route: 048
     Dates: start: 20090406
  7. ZYPREXA [Concomitant]
     Route: 048
     Dates: start: 20090520, end: 20090624
  8. ZYPREXA [Concomitant]
     Indication: DRUG USE FOR UNKNOWN INDICATION
     Route: 048
     Dates: start: 20090520, end: 20090624
  9. LAMICTAL [Concomitant]
     Route: 048
     Dates: start: 20090520
  10. LAMICTAL [Concomitant]
     Route: 048
     Dates: start: 20090520
  11. LAMICTAL [Concomitant]
     Route: 048
     Dates: start: 20090520
  12. ASPIRIN [Concomitant]
     Route: 048
     Dates: start: 20070101

REACTIONS (3)
  - CAMPTOCORMIA [None]
  - MOANING [None]
  - PLEUROTHOTONUS [None]
